FAERS Safety Report 14959307 (Version 1)
Quarter: 2018Q2

REPORT INFORMATION
  Report Type: Report from Study
  Country: None (occurrence: NL)
  Receive Date: 20180531
  Receipt Date: 20180531
  Transmission Date: 20180711
  Serious: Yes (Other)
  Sender: FDA-Public Use
  Company Number: NL-GALEN LIMITED-AE-2018-0753

PATIENT
  Sex: 0

DRUGS (3)
  1. CYTARABINE. [Suspect]
     Active Substance: CYTARABINE
     Indication: ACUTE MYELOID LEUKAEMIA
     Route: 042
  2. CLOFARABINE. [Suspect]
     Active Substance: CLOFARABINE
     Indication: ACUTE MYELOID LEUKAEMIA
     Route: 042
  3. DAUNOXOME [Suspect]
     Active Substance: DAUNORUBICIN CITRATE
     Indication: ACUTE MYELOID LEUKAEMIA
     Route: 042

REACTIONS (4)
  - Acute kidney injury [Unknown]
  - Product use in unapproved indication [Unknown]
  - Off label use [None]
  - Product use issue [Unknown]
